FAERS Safety Report 19977242 (Version 1)
Quarter: 2021Q4

REPORT INFORMATION
  Report Type: Spontaneous
  Country: US (occurrence: US)
  Receive Date: 20211018
  Receipt Date: 20211018
  Transmission Date: 20220303
  Serious: Yes (Hospitalization)
  Sender: FDA-Public Use
  Company Number: None

PATIENT
  Age: 75 Year
  Sex: Female

DRUGS (1)
  1. DEFERASIROX [Suspect]
     Active Substance: DEFERASIROX
     Indication: Haemochromatosis
     Route: 048
     Dates: start: 20210819

REACTIONS (3)
  - Pyrexia [None]
  - Tremor [None]
  - Disorientation [None]

NARRATIVE: CASE EVENT DATE: 20211001
